FAERS Safety Report 15349599 (Version 1)
Quarter: 2018Q3

REPORT INFORMATION
  Report Type: Spontaneous
  Country: FR (occurrence: FR)
  Receive Date: 20180904
  Receipt Date: 20180904
  Transmission Date: 20181010
  Serious: Yes (Hospitalization, Other)
  Sender: FDA-Public Use
  Company Number: FR-GILEAD-2017-0265263

PATIENT
  Age: 43 Year
  Sex: Female
  Weight: 40.5 kg

DRUGS (8)
  1. EMTRIVA [Concomitant]
     Active Substance: EMTRICITABINE
     Indication: HIV INFECTION
     Route: 065
  2. RITONAVIR. [Concomitant]
     Active Substance: RITONAVIR
     Indication: HIV INFECTION
     Route: 065
  3. DARUNAVIR [Concomitant]
     Active Substance: DARUNAVIR
     Indication: HIV INFECTION
     Dosage: UNK
     Route: 065
  4. TENOFOVIR DISOPROXIL FUMARATE. [Suspect]
     Active Substance: TENOFOVIR DISOPROXIL FUMARATE
     Indication: HIV INFECTION
     Dosage: UNK
     Route: 065
  5. TENOFOVIR DISOPROXIL FUMARATE. [Suspect]
     Active Substance: TENOFOVIR DISOPROXIL FUMARATE
     Indication: HIV INFECTION
  6. RITONAVIR. [Concomitant]
     Active Substance: RITONAVIR
     Dosage: UNK UNK,UNK
     Route: 065
  7. RITONAVIR. [Concomitant]
     Active Substance: RITONAVIR
     Indication: HIV INFECTION
     Route: 065
  8. DARUNAVIR [Concomitant]
     Active Substance: DARUNAVIR
     Indication: HIV INFECTION
     Dosage: UNK UNK,UNK
     Route: 065

REACTIONS (13)
  - Blood creatine increased [Recovered/Resolved]
  - Aminoaciduria [Recovered/Resolved]
  - Fanconi syndrome acquired [Recovered/Resolved]
  - Hypophosphataemia [Recovered/Resolved]
  - Urine uric acid increased [Recovered/Resolved]
  - Weight decreased [Recovered/Resolved]
  - Proteinuria [Recovered/Resolved]
  - Acidosis hyperchloraemic [Recovered/Resolved]
  - Blood uric acid decreased [Recovered/Resolved]
  - Glycosuria [Recovered/Resolved]
  - Deoxypyridinoline urine increased [Recovered/Resolved]
  - Glomerular filtration rate decreased [Recovered/Resolved]
  - Urine calcium increased [Recovered/Resolved]
